FAERS Safety Report 18553414 (Version 2)
Quarter: 2020Q4

REPORT INFORMATION
  Report Type: Report from Study
  Country: FR (occurrence: FR)
  Receive Date: 20201127
  Receipt Date: 20201204
  Transmission Date: 20210114
  Serious: Yes (Other)
  Sender: FDA-Public Use
  Company Number: FR-PFIZER INC-2020462469

PATIENT
  Age: 57 Year
  Sex: Female

DRUGS (14)
  1. HUMIRA [Suspect]
     Active Substance: ADALIMUMAB
     Indication: PSORIASIS
     Dosage: 80 MG, WEEKLY
     Route: 058
     Dates: start: 201405, end: 2014
  2. MIFLASONE [Concomitant]
     Active Substance: BECLOMETHASONE DIPROPIONATE
     Dosage: UNK, 1X/DAY
     Route: 055
     Dates: start: 20140923
  3. SOLUPRED [METHYLPREDNISOLONE SODIUM SUCCINATE] [Concomitant]
     Active Substance: METHYLPREDNISOLONE SODIUM SUCCINATE
     Dates: start: 201408
  4. VENTOLINE [SALBUTAMOL] [Concomitant]
     Active Substance: ALBUTEROL SULFATE
     Indication: ASTHMA
     Dosage: UNK, 1X/DAY
     Dates: start: 201408
  5. EXFORGE [Concomitant]
     Active Substance: AMLODIPINE BESYLATE\VALSARTAN
  6. HUMIRA [Suspect]
     Active Substance: ADALIMUMAB
     Dosage: 40 MG, CYCLIC (EVERY 2 WEEKS)
     Route: 058
     Dates: start: 201406, end: 20140915
  7. VENTOLINE [SALBUTAMOL] [Concomitant]
     Active Substance: ALBUTEROL SULFATE
     Indication: ASTHMA
     Dosage: UNK UNK, 1X/DAY
     Dates: start: 201408
  8. VENTOLINE [SALBUTAMOL] [Concomitant]
     Active Substance: ALBUTEROL SULFATE
     Dosage: UNK, 1X/DAY
  9. DEROXAT [Concomitant]
     Active Substance: PAROXETINE HYDROCHLORIDE
  10. SPECIAFOLDINE [Concomitant]
     Active Substance: FOLIC ACID
     Dates: start: 20131202
  11. METHOTREXATE SODIUM. [Suspect]
     Active Substance: METHOTREXATE SODIUM
     Indication: PSORIASIS
     Dosage: 15 MG, WEEKLY
     Route: 065
     Dates: start: 201312
  12. PYOSTACINE [Concomitant]
     Active Substance: PRISTINAMYCIN
     Dosage: 1000 MG, DAILY (IN 2 INTAKES DAILY: MORNING AND EVENING)
     Dates: start: 20140915
  13. FORADIL [Concomitant]
     Active Substance: FORMOTEROL FUMARATE
     Dosage: UNK, 1X/DAY
     Route: 055
     Dates: start: 20140923
  14. LAROXYL [Concomitant]
     Active Substance: AMITRIPTYLINE HYDROCHLORIDE

REACTIONS (1)
  - Asthma [Recovered/Resolved]

NARRATIVE: CASE EVENT DATE: 20140913
